FAERS Safety Report 17377551 (Version 2)
Quarter: 2020Q1

REPORT INFORMATION
  Report Type: Other
  Country: US (occurrence: US)
  Receive Date: 20200206
  Receipt Date: 20200227
  Transmission Date: 20200409
  Serious: Yes (Hospitalization, Other)
  Sender: FDA-Public Use
  Company Number: US-AMAG PHARMACEUTICALS, INC.-AMAG202000401

PATIENT
  Age: 38 Year
  Sex: Female

DRUGS (3)
  1. PRENATAL VITAMIN [Concomitant]
     Active Substance: VITAMINS
     Indication: PREGNANCY
     Dates: start: 20190718
  2. MAKENA [Suspect]
     Active Substance: HYDROXYPROGESTERONE CAPROATE
     Indication: PREMATURE DELIVERY
     Route: 058
     Dates: start: 20191009, end: 20191230
  3. RHOGAM [Concomitant]
     Active Substance: HUMAN RHO(D) IMMUNE GLOBULIN
     Indication: RHESUS ANTIGEN NEGATIVE
     Dates: start: 20190718

REACTIONS (2)
  - Product dose omission [Unknown]
  - Premature delivery [Recovered/Resolved]

NARRATIVE: CASE EVENT DATE: 20191226
